FAERS Safety Report 21919250 (Version 1)
Quarter: 2023Q1

REPORT INFORMATION
  Report Type: Spontaneous
  Country: US (occurrence: None)
  Receive Date: 20230126
  Receipt Date: 20230126
  Transmission Date: 20230417
  Serious: Yes (Death)
  Sender: FDA-Public Use
  Company Number: None

PATIENT
  Age: 72 Year
  Sex: Female

DRUGS (15)
  1. LUPRON [Suspect]
     Active Substance: LEUPROLIDE ACETATE
     Indication: Metastases to lung
     Route: 030
     Dates: start: 20221208, end: 20230122
  2. ALFUZOSIN TAB [Concomitant]
  3. CITALOPRAM TAB [Concomitant]
  4. CLOPIDOGREL TAB [Concomitant]
  5. ESCITALOPRAM TAB [Concomitant]
  6. EZETIM/SIMVA [Concomitant]
  7. LORAZEPAM TAB [Concomitant]
  8. METFORMIN TAB [Concomitant]
  9. MICARDIS TAB [Concomitant]
  10. MORPHINE SUL TAB [Concomitant]
  11. MUCINEX DM TAB [Concomitant]
  12. ONDANSETRON TAB [Concomitant]
  13. PROCHLORPER TAB [Concomitant]
  14. TYLENOL TAB [Concomitant]
  15. VYTORIN TAB [Concomitant]

REACTIONS (1)
  - Death [None]

NARRATIVE: CASE EVENT DATE: 20230122
